FAERS Safety Report 12503479 (Version 1)
Quarter: 2016Q2

REPORT INFORMATION
  Report Type: Spontaneous
  Country: US (occurrence: None)
  Receive Date: 20160627
  Receipt Date: 20160627
  Transmission Date: 20160815
  Serious: Yes (Life-Threatening, Hospitalization, Disabling)
  Sender: FDA-Public Use
  Company Number: None

PATIENT
  Age: 63 Year
  Sex: Male
  Weight: 90.72 kg

DRUGS (11)
  1. CURBSIDE [Concomitant]
  2. OXYCODONE AND ACETAMINOPHEN [Concomitant]
     Active Substance: ACETAMINOPHEN\OXYCODONE HYDROCHLORIDE
  3. LEVEMIR [Concomitant]
     Active Substance: INSULIN DETEMIR
  4. PANTOPRAZOLE SODIUM. [Concomitant]
     Active Substance: PANTOPRAZOLE SODIUM
  5. MULTIVITAMIN [Concomitant]
     Active Substance: VITAMINS
  6. POT CHLORIDE [Concomitant]
     Active Substance: POTASSIUM CHLORIDE
  7. HUMALOG [Concomitant]
     Active Substance: INSULIN LISPRO
  8. ASPRIN [Concomitant]
     Active Substance: ASPIRIN
  9. METOPROLOL TAR [Concomitant]
     Active Substance: METOPROLOL TARTRATE
  10. COENZYME Q10 [Concomitant]
     Active Substance: UBIDECARENONE
  11. REPATHA [Suspect]
     Active Substance: EVOLOCUMAB
     Route: 030

REACTIONS (33)
  - Headache [None]
  - Injection site swelling [None]
  - Eye movement disorder [None]
  - Gynaecomastia [None]
  - Penile size reduced [None]
  - Anger [None]
  - Speech disorder [None]
  - Urine output increased [None]
  - Blood testosterone decreased [None]
  - Injection site mass [None]
  - Feeling abnormal [None]
  - Urine odour abnormal [None]
  - Erectile dysfunction [None]
  - Abdominal distension [None]
  - Immune system disorder [None]
  - Nausea [None]
  - Blood pressure increased [None]
  - Penis disorder [None]
  - Amnesia [None]
  - Abdominal pain [None]
  - Thyroid function test abnormal [None]
  - Hyperhidrosis [None]
  - Feeling hot [None]
  - Yellow skin [None]
  - Ocular icterus [None]
  - Altered state of consciousness [None]
  - Respiratory rate increased [None]
  - Chromaturia [None]
  - Erythema [None]
  - Confusional state [None]
  - Blood glucose increased [None]
  - Depression [None]
  - Choking [None]

NARRATIVE: CASE EVENT DATE: 20160306
